FAERS Safety Report 9126351 (Version 2)
Quarter: 2013Q3

REPORT INFORMATION
  Report Type: Spontaneous
  Country: IT (occurrence: IT)
  Receive Date: 20130117
  Receipt Date: 20130815
  Transmission Date: 20140515
  Serious: Yes (Life-Threatening, Hospitalization)
  Sender: FDA-Public Use
  Company Number: IT-ROCHE-1180041

PATIENT
  Age: 62 Year
  Sex: Female

DRUGS (1)
  1. ROCEFIN [Suspect]
     Indication: PNEUMONIA
     Route: 030
     Dates: start: 20130107, end: 20130107

REACTIONS (2)
  - Anaphylactic shock [Unknown]
  - Cardio-respiratory arrest [Unknown]
